FAERS Safety Report 18545766 (Version 1)
Quarter: 2020Q4

REPORT INFORMATION
  Report Type: Report from Study
  Country: None (occurrence: US)
  Receive Date: 20201125
  Receipt Date: 20201125
  Transmission Date: 20210114
  Serious: Yes (Death, Hospitalization)
  Sender: FDA-Public Use
  Company Number: US-ABBVIE-20K-163-3665436-00

PATIENT
  Age: 68 Year
  Sex: Male

DRUGS (1)
  1. CREON [Suspect]
     Active Substance: PANCRELIPASE AMYLASE\PANCRELIPASE LIPASE\PANCRELIPASE PROTEASE
     Indication: PANCREATIC CARCINOMA
     Dosage: THREE AT EACH MEAL AND ONE AT EACH SNACKS
     Route: 048
     Dates: start: 201906, end: 20201008

REACTIONS (5)
  - Pneumonia cryptococcal [Fatal]
  - Clostridium difficile infection [Fatal]
  - Sepsis [Fatal]
  - Urinary tract infection [Fatal]
  - Immunodeficiency [Fatal]

NARRATIVE: CASE EVENT DATE: 202009
